FAERS Safety Report 8023149-3 (Version None)
Quarter: 2012Q1

REPORT INFORMATION
  Report Type: 
  Country: None (occurrence: None)
  Receive Date: 20120104
  Receipt Date: 20111230
  Transmission Date: 20120608
  Serious: Yes (Death, Other)
  Sender: FDA-Public Use
  Company Number: US-PFIZER INC-2011309689

PATIENT
  Age: 73 Year
  Sex: Female

DRUGS (6)
  1. HYDROXYZINE [Suspect]
     Dosage: UNK
     Route: 065
  2. PHENYTOIN [Suspect]
     Dosage: UNK
  3. METOPROLOL [Suspect]
     Dosage: UNK
  4. SERTRALINE HYDROCHLORIDE [Suspect]
     Dosage: UNK
     Route: 065
  5. OMEPRAZOLE [Suspect]
     Dosage: UNK
     Route: 065
  6. GABAPENTIN [Suspect]
     Dosage: UNK
     Route: 065

REACTIONS (1)
  - DEATH [None]
